FAERS Safety Report 8189860-9 (Version None)
Quarter: 2012Q1

REPORT INFORMATION
  Report Type: 
  Country: None (occurrence: None)
  Receive Date: 20120307
  Receipt Date: 20120104
  Transmission Date: 20120608
  Serious: No
  Sender: FDA-Public Use
  Company Number: US-GLAXOSMITHKLINE-A0960253A

PATIENT
  Age: 64 Year
  Sex: Female
  Weight: 73.6 kg

DRUGS (1)
  1. REQUIP [Suspect]
     Indication: RESTLESS LEGS SYNDROME
     Dosage: .5MG UNKNOWN
     Route: 065
     Dates: start: 20110322

REACTIONS (1)
  - DRUG EFFECT DECREASED [None]
